FAERS Safety Report 5943820-4 (Version None)
Quarter: 2008Q4

REPORT INFORMATION
  Report Type: 
  Country: None (occurrence: None)
  Receive Date: 20081106
  Receipt Date: 20081027
  Transmission Date: 20090506
  Serious: Yes (Other)
  Sender: FDA-Public Use
  Company Number: US-PFIZER INC-2008091109

PATIENT
  Sex: Male

DRUGS (1)
  1. LIPITOR [Suspect]
     Dates: start: 20080101, end: 20080901

REACTIONS (3)
  - ARTHRALGIA [None]
  - MUSCULOSKELETAL PAIN [None]
  - MYALGIA [None]
